FAERS Safety Report 6855775-9 (Version None)
Quarter: 2010Q3

REPORT INFORMATION
  Report Type: 
  Country: None (occurrence: None)
  Receive Date: 20100715
  Receipt Date: 20100715
  Transmission Date: 20110219
  Serious: No
  Sender: FDA-Public Use
  Company Number: None

PATIENT
  Age: 66 Year
  Sex: Male
  Weight: 92.9874 kg

DRUGS (1)
  1. SIMVASTATIN [Suspect]
     Dosage: 80 MG 1 TABLET IN PM
     Dates: start: 20100626, end: 20100629

REACTIONS (1)
  - PRODUCT QUALITY ISSUE [None]
